FAERS Safety Report 12012296 (Version 1)
Quarter: 2016Q1

REPORT INFORMATION
  Report Type: Spontaneous
  Country: DE (occurrence: DE)
  Receive Date: 20160205
  Receipt Date: 20160205
  Transmission Date: 20160526
  Serious: Yes (Other)
  Sender: FDA-Public Use
  Company Number: DE-JNJFOC-20160118600

PATIENT
  Sex: Female

DRUGS (3)
  1. RAMILICH [Concomitant]
     Active Substance: RAMIPRIL
     Indication: PRODUCT USED FOR UNKNOWN INDICATION
     Route: 048
  2. REGAINE FRAUEN [Suspect]
     Active Substance: MINOXIDIL
     Route: 061
  3. REGAINE FRAUEN [Suspect]
     Active Substance: MINOXIDIL
     Indication: PRODUCT USED FOR UNKNOWN INDICATION
     Route: 061
     Dates: start: 20151205

REACTIONS (7)
  - Swelling face [Recovering/Resolving]
  - Application site pain [Recovering/Resolving]
  - Application site pruritus [Recovering/Resolving]
  - Eye swelling [Recovering/Resolving]
  - Contraindicated drug administered [Recovering/Resolving]
  - Application site swelling [Recovering/Resolving]
  - Inappropriate schedule of drug administration [Recovering/Resolving]

NARRATIVE: CASE EVENT DATE: 20151205
